FAERS Safety Report 8986712 (Version 1)
Quarter: 2012Q4

REPORT INFORMATION
  Report Type: 
  Country: IT (occurrence: IT)
  Receive Date: 20121226
  Receipt Date: 20121226
  Transmission Date: 20130627
  Serious: Yes (Other)
  Sender: FDA-Public Use
  Company Number: IT-SANOFI-AVENTIS-2012SA092302

PATIENT
  Age: 39 Year
  Sex: Female

DRUGS (1)
  1. FERLIXIT [Suspect]
     Indication: HYPOCHROMIC ANAEMIA
     Dosage: Form - OS-IV solution
     Route: 042
     Dates: start: 20121210, end: 20121210

REACTIONS (1)
  - Angioedema [Recovered/Resolved]
